FAERS Safety Report 4715983-X (Version None)
Quarter: 2005Q3

REPORT INFORMATION
  Report Type: 
  Country: None (occurrence: None)
  Receive Date: 20050718
  Receipt Date: 20031030
  Transmission Date: 20060218
  Serious: Yes (Hospitalization)
  Sender: FDA-Public Use
  Company Number: US-GLAXOSMITHKLINE-A0432719A

PATIENT
  Sex: Female

DRUGS (1)
  1. PAXIL [Suspect]
     Indication: DRUG USE FOR UNKNOWN INDICATION
     Dosage: 40MG PER DAY
     Route: 048
     Dates: start: 19980101

REACTIONS (10)
  - AFFECT LABILITY [None]
  - ANXIETY [None]
  - CHEST DISCOMFORT [None]
  - DEPRESSION [None]
  - DRUG WITHDRAWAL SYNDROME [None]
  - HEART RATE INCREASED [None]
  - NAUSEA [None]
  - RESTLESSNESS [None]
  - SEROTONIN SYNDROME [None]
  - SUICIDAL IDEATION [None]
